FAERS Safety Report 11592908 (Version 1)
Quarter: 2015Q4

REPORT INFORMATION
  Report Type: Spontaneous
  Country: US (occurrence: None)
  Receive Date: 20151002
  Receipt Date: 20151002
  Transmission Date: 20160304
  Serious: No
  Sender: FDA-Public Use
  Company Number: None

PATIENT
  Age: 39 Year
  Sex: Female
  Weight: 77.11 kg

DRUGS (6)
  1. 5-HTP [Concomitant]
     Active Substance: OXITRIPTAN
  2. MULTIVITAMIN [Concomitant]
     Active Substance: VITAMINS
  3. B6 SUPPLEMENT [Concomitant]
  4. ESCITALOPRAM 10MG [Suspect]
     Active Substance: ESCITALOPRAM OXALATE
     Indication: PREMENSTRUAL DYSPHORIC DISORDER
     Dosage: 1/2 PILL ?ONCE DAILY ?TAKEN BY MOUTH
     Route: 048
     Dates: start: 20150717, end: 20150807
  5. VITAMIN C [Concomitant]
     Active Substance: ASCORBIC ACID
  6. CALCIUM [Concomitant]
     Active Substance: CALCIUM

REACTIONS (1)
  - Alopecia [None]

NARRATIVE: CASE EVENT DATE: 20150807
